FAERS Safety Report 5393778-4 (Version None)
Quarter: 2007Q3

REPORT INFORMATION
  Report Type: 
  Country: None (occurrence: None)
  Receive Date: 20070723
  Receipt Date: 20070717
  Transmission Date: 20080115
  Serious: Yes (Hospitalization)
  Sender: FDA-Public Use
  Company Number: CA-AMGEN-US054568

PATIENT
  Sex: Female

DRUGS (7)
  1. KINERET [Suspect]
     Indication: RHEUMATOID ARTHRITIS
     Dosage: 100 MG
     Route: 058
     Dates: start: 20021111, end: 20030429
  2. METHOTREXATE [Suspect]
     Dates: start: 20010101, end: 20030429
  3. PREDNISONE [Suspect]
     Dates: start: 20010101
  4. FOSAMAX [Concomitant]
     Dates: start: 20010101
  5. CALCIUM CHLORIDE [Concomitant]
     Dates: start: 20010101
  6. PAXIL [Concomitant]
     Dates: start: 20010101
  7. TYLENOL (CAPLET) [Concomitant]
     Dates: start: 20010101

REACTIONS (5)
  - ERYSIPELAS [None]
  - HERPES ZOSTER [None]
  - PHARYNGITIS [None]
  - PHARYNGITIS STREPTOCOCCAL [None]
  - RHEUMATOID ARTHRITIS [None]
